APPROVED DRUG PRODUCT: RUBEX
Active Ingredient: DOXORUBICIN HYDROCHLORIDE
Strength: 100MG/VIAL
Dosage Form/Route: INJECTABLE;INJECTION
Application: A062926 | Product #003
Applicant: BRISTOL MYERS SQUIBB CO
Approved: Apr 13, 1989 | RLD: No | RS: No | Type: DISCN